FAERS Safety Report 4761899-2 (Version None)
Quarter: 2005Q3

REPORT INFORMATION
  Report Type: 
  Country: None (occurrence: None)
  Receive Date: 20050831
  Receipt Date: 20040909
  Transmission Date: 20060218
  Serious: Yes (Other)
  Sender: FDA-Public Use
  Company Number: 2004233148US

PATIENT
  Age: 81 Year
  Sex: Male
  Weight: 72.6 kg

DRUGS (10)
  1. DETROL LA [Suspect]
     Indication: BLADDER DISORDER
     Dosage: 4 MG, QD
     Dates: start: 20040903, end: 20040903
  2. ACCUPRIL [Concomitant]
  3. TRICOR [Concomitant]
  4. HYDROCHLOROTHIAZIDE [Concomitant]
  5. LEVOXYL [Concomitant]
  6. PLAVIX [Concomitant]
  7. PROTONIX [Concomitant]
  8. LESCOL [Concomitant]
  9. KLOR-CON [Concomitant]
  10. LASIX [Concomitant]

REACTIONS (2)
  - ABDOMINAL PAIN LOWER [None]
  - DYSURIA [None]
